FAERS Safety Report 15507104 (Version 1)
Quarter: 2018Q4

REPORT INFORMATION
  Report Type: Spontaneous
  Country: CN (occurrence: CN)
  Receive Date: 20181016
  Receipt Date: 20181016
  Transmission Date: 20190205
  Serious: Yes (Other)
  Sender: FDA-Public Use
  Company Number: PHHY2018CN125224

PATIENT
  Age: 67 Year
  Sex: Male

DRUGS (2)
  1. OCTREOTIDE. [Suspect]
     Active Substance: OCTREOTIDE
     Indication: PANCREATITIS ACUTE
     Dosage: 0.4 MG, TID
     Route: 050
     Dates: start: 20180202, end: 20180217
  2. INSULIN INJECTION [Concomitant]
     Active Substance: INSULIN NOS
     Indication: PANCREATITIS
     Dosage: 6 ML, QD
     Route: 042
     Dates: start: 20180202, end: 20180217

REACTIONS (1)
  - Blood glucose abnormal [Unknown]

NARRATIVE: CASE EVENT DATE: 20180206
